FAERS Safety Report 15120274 (Version 1)
Quarter: 2018Q3

REPORT INFORMATION
  Report Type: Spontaneous
  Country: FR (occurrence: FR)
  Receive Date: 20180709
  Receipt Date: 20180709
  Transmission Date: 20181010
  Serious: Yes (Other)
  Sender: FDA-Public Use
  Company Number: FR-009507513-1807FRA000727

PATIENT
  Age: 83 Year
  Sex: Male
  Weight: 71.8 kg

DRUGS (2)
  1. KEYTRUDA [Suspect]
     Active Substance: PEMBROLIZUMAB
     Indication: MALIGNANT MELANOMA
     Route: 041
     Dates: start: 20180109, end: 20180404
  2. VERSATIS [Concomitant]
     Active Substance: LIDOCAINE
     Indication: PAIN
     Dosage: UNKNOWN
     Route: 003
     Dates: start: 20180314

REACTIONS (1)
  - Transient acantholytic dermatosis [Recovered/Resolved]

NARRATIVE: CASE EVENT DATE: 201804
